FAERS Safety Report 8515113-2 (Version None)
Quarter: 2012Q3

REPORT INFORMATION
  Report Type: 
  Country: None (occurrence: None)
  Receive Date: 20120717
  Receipt Date: 20120713
  Transmission Date: 20120928
  Serious: Yes (Death)
  Sender: FDA-Public Use
  Company Number: DE-PFIZER INC-2012158199

PATIENT
  Age: 52 Year
  Sex: Female

DRUGS (12)
  1. DOXEPIN [Interacting]
     Indication: MENTAL DISORDER
     Dosage: 25MG, DAILY
  2. TILIDINE [Suspect]
  3. DOXEPIN [Interacting]
     Dosage: 125MG, DAILY
  4. IBUPROFEN [Suspect]
  5. PROTHIPENDYL [Interacting]
     Dosage: DOUBLE DOSAGE, AT NIGHT
  6. AMLODIPINE BESYLATE [Interacting]
     Dosage: 2.5MG, UNK
  7. OLANZAPINE [Suspect]
  8. AMLODIPINE BESYLATE [Interacting]
     Dosage: 7.5MG, UNK
  9. AMLODIPINE BESYLATE [Interacting]
     Dosage: 10MG, UNK
  10. DIAZEPAM [Interacting]
  11. METOPROLOL SUCCINATE [Suspect]
  12. DOXEPIN [Interacting]
     Dosage: 100MG, DAILY

REACTIONS (7)
  - PAIN [None]
  - DRUG INTERACTION [None]
  - TOXICITY TO VARIOUS AGENTS [None]
  - DROOLING [None]
  - LETHARGY [None]
  - INSOMNIA [None]
  - GAIT DISTURBANCE [None]
